FAERS Safety Report 24312219 (Version 2)
Quarter: 2024Q3

REPORT INFORMATION
  Report Type: Spontaneous
  Country: US (occurrence: US)
  Receive Date: 20240912
  Receipt Date: 20240919
  Transmission Date: 20241017
  Serious: Yes (Hospitalization)
  Sender: PFIZER
  Company Number: US-PFIZER INC-202400254830

PATIENT
  Age: 71 Year
  Sex: Female

DRUGS (2)
  1. IBRANCE [Suspect]
     Active Substance: PALBOCICLIB
     Dosage: 125 MG, CYCLIC (TAKE 1 FOR 21 DAYS ON AND 7 DAYS OFF/TAKE 1 CAPSULE (125 MG) BY MOUTH DAILY. STOP TA
     Route: 048
  2. IBRANCE [Suspect]
     Active Substance: PALBOCICLIB
     Dosage: 125 MG, CYCLIC (TAKE 1 FOR 21 DAYS ON AND 7 DAYS OFF/TAKE 1 CAPSULE (125 MG) BY MOUTH DAILY. TAKE ON
     Route: 048

REACTIONS (1)
  - COVID-19 [Unknown]
